FAERS Safety Report 9071503 (Version 1)
Quarter: 2013Q1

REPORT INFORMATION
  Report Type: Spontaneous
  Country: US (occurrence: US)
  Receive Date: 20130206
  Receipt Date: 20130206
  Transmission Date: 20140127
  Serious: No
  Sender: FDA-Public Use
  Company Number: US-ALLERGAN-1211936US

PATIENT
  Age: 77 Year
  Sex: Female

DRUGS (5)
  1. REFRESH P.M. [Suspect]
     Indication: DRY EYE
     Dosage: UNK UNK, QHS
     Route: 047
     Dates: start: 201206, end: 20120821
  2. REFRESH P.M. [Suspect]
     Indication: EYE IRRITATION
  3. RESTASIS? [Suspect]
     Indication: DRY EYE
     Dosage: 2 GTT, UNK
     Dates: start: 201206, end: 20120801
  4. RESTASIS? [Suspect]
     Indication: EYE IRRITATION
  5. REFRESH OPTIVE [Concomitant]
     Indication: EYE IRRITATION
     Dosage: 2 GTT, UNK

REACTIONS (2)
  - Abnormal sensation in eye [Recovered/Resolved]
  - Vision blurred [Recovered/Resolved]
